FAERS Safety Report 9473419 (Version 2)
Quarter: 2013Q3

REPORT INFORMATION
  Report Type: Spontaneous
  Country: US (occurrence: US)
  Receive Date: 20130823
  Receipt Date: 20130823
  Transmission Date: 20140515
  Serious: Yes (Other)
  Sender: FDA-Public Use
  Company Number: US-BRISTOL-MYERS SQUIBB COMPANY-18961359

PATIENT
  Age: 50 Year
  Sex: Female

DRUGS (1)
  1. SPRYCEL (CML) TABS 50 MG [Suspect]
     Indication: CHRONIC MYELOID LEUKAEMIA
     Dosage: DOSE REGIMEN:1X40MG
     Route: 048
     Dates: start: 201302, end: 201305

REACTIONS (2)
  - Malignant neoplasm progression [Unknown]
  - Malaise [Unknown]
